FAERS Safety Report 24162723 (Version 1)
Quarter: 2024Q3

REPORT INFORMATION
  Report Type: Spontaneous
  Country: US (occurrence: None)
  Receive Date: 20240731
  Receipt Date: 20240731
  Transmission Date: 20241017
  Serious: Yes (Death, Hospitalization)
  Sender: Public
  Company Number: None

PATIENT
  Age: 77 Year
  Sex: Male

DRUGS (22)
  1. PIRFENIDONE [Suspect]
     Active Substance: PIRFENIDONE
     Indication: Interstitial lung disease
     Dosage: 801 MG TID ORAL?
     Route: 048
     Dates: start: 20150713, end: 20240608
  2. ALBUTEROL HFA [Concomitant]
  3. CARVEDILOL [Concomitant]
  4. CETIRIZINE [Concomitant]
  5. FINASTERIDE [Concomitant]
  6. FLONASE [Concomitant]
  7. ADVAIR HFA [Concomitant]
  8. GABAPENTIN [Concomitant]
  9. LOSARTAN [Concomitant]
  10. TAMSULOSIN [Concomitant]
  11. SPIRIVA RESPIMAT [Concomitant]
  12. PREDNISONE [Concomitant]
  13. MIRTAZAPINE [Concomitant]
  14. THIAMINE [Concomitant]
  15. FUROSEMIDE [Concomitant]
  16. MELATONIN [Concomitant]
  17. BISACODYL [Concomitant]
     Active Substance: BISACODYL
  18. COLACE [Concomitant]
  19. SENNA [Concomitant]
  20. MIRALAX [Concomitant]
  21. MUCINEX DM [Concomitant]
  22. CALCIUM WITH VITAMIN D [Concomitant]

REACTIONS (5)
  - Asthenia [None]
  - Fall [None]
  - Sepsis [None]
  - Pneumonia [None]
  - Pulmonary embolism [None]

NARRATIVE: CASE EVENT DATE: 20240530
